FAERS Safety Report 9149190 (Version 1)
Quarter: 2013Q1

REPORT INFORMATION
  Report Type: Spontaneous
  Country: US (occurrence: US)
  Receive Date: 20130308
  Receipt Date: 20130308
  Transmission Date: 20140127
  Serious: Yes (Other)
  Sender: FDA-Public Use
  Company Number: US-ENDO PHARMACEUTICALS INC.-OPCR20121750

PATIENT
  Sex: Female

DRUGS (3)
  1. OPANA ER 20MG [Suspect]
     Indication: BREAKTHROUGH PAIN
     Route: 048
     Dates: start: 20120525, end: 2012
  2. MORPHINE SULFATE ER [Suspect]
     Indication: DRUG ABUSE
     Dosage: UNKNOWN
     Route: 065
  3. HYDROMORPHONE [Concomitant]
     Indication: PAIN
     Dosage: UNKNOWN
     Route: 065

REACTIONS (1)
  - Drug abuse [Unknown]
